FAERS Safety Report 6772947-2 (Version None)
Quarter: 2010Q2

REPORT INFORMATION
  Report Type: 
  Country: None (occurrence: None)
  Receive Date: 20100616
  Receipt Date: 20100505
  Transmission Date: 20101027
  Serious: Yes (Other)
  Sender: FDA-Public Use
  Company Number: US-BAXTER-2010BH000979

PATIENT
  Age: 58 Year
  Sex: Female
  Weight: 154 kg

DRUGS (34)
  1. HEPARIN SODIUM [Suspect]
     Indication: THROMBOSIS PROPHYLAXIS
     Route: 042
     Dates: start: 20080210, end: 20080211
  2. HEPARIN SODIUM [Suspect]
     Indication: PERITONEAL DIALYSIS
     Route: 042
     Dates: start: 20080210, end: 20080211
  3. HEPARIN SODIUM [Suspect]
     Indication: HAEMODIALYSIS
     Route: 042
     Dates: start: 20080210, end: 20080211
  4. HEPARIN SODIUM [Suspect]
     Route: 042
     Dates: start: 20080212, end: 20080212
  5. HEPARIN SODIUM [Suspect]
     Route: 042
     Dates: start: 20080212, end: 20080212
  6. HEPARIN SODIUM [Suspect]
     Route: 042
     Dates: start: 20080212, end: 20080212
  7. HEPARIN SODIUM [Suspect]
     Route: 040
     Dates: start: 20080213, end: 20080215
  8. HEPARIN SODIUM [Suspect]
     Route: 040
     Dates: start: 20080213, end: 20080215
  9. HEPARIN SODIUM [Suspect]
     Route: 040
     Dates: start: 20080213, end: 20080215
  10. HEPARIN SODIUM [Suspect]
     Route: 040
     Dates: start: 20080215, end: 20080220
  11. HEPARIN SODIUM [Suspect]
     Route: 040
     Dates: start: 20080215, end: 20080220
  12. HEPARIN SODIUM [Suspect]
     Route: 040
     Dates: start: 20080215, end: 20080220
  13. HEPARIN SODIUM [Suspect]
     Route: 040
     Dates: start: 20080215, end: 20080215
  14. HEPARIN SODIUM [Suspect]
     Route: 040
     Dates: start: 20080215, end: 20080215
  15. HEPARIN SODIUM [Suspect]
     Route: 040
     Dates: start: 20080215, end: 20080215
  16. HEPARIN SODIUM [Suspect]
     Route: 058
     Dates: start: 20080215, end: 20080221
  17. HEPARIN SODIUM [Suspect]
     Route: 058
     Dates: start: 20080215, end: 20080221
  18. HEPARIN SODIUM [Suspect]
     Route: 058
     Dates: start: 20080215, end: 20080221
  19. HEPARIN SODIUM [Suspect]
     Route: 040
     Dates: start: 20080216, end: 20080220
  20. HEPARIN SODIUM [Suspect]
     Route: 040
     Dates: start: 20080216, end: 20080220
  21. HEPARIN SODIUM [Suspect]
     Route: 040
     Dates: start: 20080216, end: 20080220
  22. LOVENOX [Suspect]
     Indication: THROMBOSIS PROPHYLAXIS
     Route: 058
     Dates: start: 20080207, end: 20080210
  23. LISINOPRIL [Concomitant]
     Indication: DRUG USE FOR UNKNOWN INDICATION
     Route: 065
  24. TYLENOL [Concomitant]
     Indication: DRUG USE FOR UNKNOWN INDICATION
     Route: 065
  25. CEFOXIN [Concomitant]
     Indication: DRUG USE FOR UNKNOWN INDICATION
     Route: 065
  26. ENOXAPARIN SODIUM [Concomitant]
     Indication: DRUG USE FOR UNKNOWN INDICATION
     Route: 065
  27. FUROSEMIDE [Concomitant]
     Indication: DRUG USE FOR UNKNOWN INDICATION
     Route: 065
  28. SODIUM CHLORIDE [Concomitant]
     Indication: DRUG USE FOR UNKNOWN INDICATION
     Route: 065
  29. FENTANYL [Concomitant]
     Indication: DRUG USE FOR UNKNOWN INDICATION
     Route: 065
  30. INSULIN [Concomitant]
     Indication: DRUG USE FOR UNKNOWN INDICATION
     Route: 065
  31. MORPHINE [Concomitant]
     Indication: DRUG USE FOR UNKNOWN INDICATION
     Route: 065
  32. PROMETHAZINE [Concomitant]
     Indication: DRUG USE FOR UNKNOWN INDICATION
     Route: 065
  33. AMBIEN [Concomitant]
     Indication: DRUG USE FOR UNKNOWN INDICATION
     Route: 065
  34. HYDROCHLOROTHIAZIDE [Concomitant]
     Indication: DRUG USE FOR UNKNOWN INDICATION
     Route: 065

REACTIONS (16)
  - ABDOMINAL DISTENSION [None]
  - ABDOMINAL PAIN [None]
  - ANAEMIA [None]
  - ATRIAL FIBRILLATION [None]
  - DRUG HYPERSENSITIVITY [None]
  - HAEMORRHAGE [None]
  - HEPARIN-INDUCED THROMBOCYTOPENIA [None]
  - MULTI-ORGAN DISORDER [None]
  - OESOPHAGITIS ULCERATIVE [None]
  - SEPTIC SHOCK [None]
  - SWELLING [None]
  - SYNCOPE [None]
  - THROMBOCYTOPENIA [None]
  - UPPER GASTROINTESTINAL HAEMORRHAGE [None]
  - VAGINAL HAEMORRHAGE [None]
  - WEANING FAILURE [None]
